FAERS Safety Report 7529927-9 (Version None)
Quarter: 2011Q2

REPORT INFORMATION
  Report Type: 
  Country: None (occurrence: None)
  Receive Date: 20110531
  Receipt Date: 20110524
  Transmission Date: 20111010
  Serious: Yes (Death)
  Sender: FDA-Public Use
  Company Number: DSA_44257_2010

PATIENT
  Sex: Male

DRUGS (4)
  1. ZYPREXA [Concomitant]
  2. XENAZINE [Suspect]
     Indication: HUNTINGTON'S DISEASE
     Dosage: (25 MG BID ORAL)
     Route: 048
     Dates: start: 20081216, end: 20100315
  3. PAXIL [Concomitant]
  4. KLONOPRIN [Concomitant]

REACTIONS (1)
  - CARDIAC ARREST [None]
